FAERS Safety Report 7144875-4 (Version None)
Quarter: 2010Q4

REPORT INFORMATION
  Report Type: 
  Country: None (occurrence: None)
  Receive Date: 20101208
  Receipt Date: 20101117
  Transmission Date: 20110411
  Serious: No
  Sender: FDA-Public Use
  Company Number: US-B.I. PHARMACEUTICALS,INC./RIDGEFIELD-2010-BP-12945BP

PATIENT
  Sex: Male

DRUGS (12)
  1. PRADAXA [Suspect]
     Indication: ATRIAL FIBRILLATION
     Dosage: 300 MG
     Route: 048
     Dates: start: 20101113
  2. RHYTAMOL [Concomitant]
     Indication: CARDIAC DISORDER
     Dosage: 650 MG
     Route: 048
  3. RHYTAMOL [Concomitant]
     Indication: ARRHYTHMIA
  4. MORPHINE [Concomitant]
     Indication: PAIN
     Dosage: 60 MG
     Route: 048
     Dates: start: 20070101
  5. GABAPENTIN [Concomitant]
     Dosage: 1600 MG
     Route: 048
     Dates: start: 20070101
  6. POTASSIUM CHLORIDE [Concomitant]
     Indication: SUPPLEMENTATION THERAPY
     Route: 048
     Dates: start: 20100101
  7. TRAMADOL HCL [Concomitant]
     Indication: MUSCLE RELAXANT THERAPY
     Route: 048
     Dates: start: 20100101
  8. SIMVASTATIN [Concomitant]
     Indication: BLOOD CHOLESTEROL INCREASED
     Dosage: 40 MG
     Route: 048
  9. FUROSEMIDE [Concomitant]
     Indication: DIURETIC THERAPY
     Dosage: 20 MG
     Route: 048
     Dates: start: 20100101
  10. LISINOPRIL [Concomitant]
     Indication: HYPERTENSION
     Dosage: 5 MG
     Route: 048
  11. CYCLOBENAZPRINE [Concomitant]
     Indication: PAIN
     Route: 048
  12. LIDODERM [Concomitant]
     Indication: PAIN
     Dates: start: 20090101

REACTIONS (4)
  - DIZZINESS [None]
  - FEELING DRUNK [None]
  - RASH [None]
  - SWELLING [None]
